FAERS Safety Report 6110259-0 (Version None)
Quarter: 2009Q1

REPORT INFORMATION
  Report Type: 
  Country: None (occurrence: None)
  Receive Date: 20090309
  Receipt Date: 20090309
  Transmission Date: 20090719
  Serious: No
  Sender: FDA-Public Use
  Company Number: None

PATIENT
  Sex: Female
  Weight: 70.3075 kg

DRUGS (1)
  1. METHIMAZOLE [Suspect]
     Indication: HYPERTHYROIDISM
     Dosage: TWO TABLETS TWICE DAILY PO
     Route: 048
     Dates: start: 20090209, end: 20090304

REACTIONS (2)
  - PRURITUS [None]
  - URTICARIA [None]
